FAERS Safety Report 8433199-0 (Version None)
Quarter: 2012Q2

REPORT INFORMATION
  Report Type: 
  Country: None (occurrence: None)
  Receive Date: 20120613
  Receipt Date: 20120606
  Transmission Date: 20120825
  Serious: Yes (Life-Threatening)
  Sender: FDA-Public Use
  Company Number: IL-GLAXOSMITHKLINE-B0803594A

PATIENT
  Age: 68 Year
  Sex: Female

DRUGS (4)
  1. DANAZOL [Concomitant]
     Dosage: 200MG PER DAY
     Route: 048
  2. ASPIRIN [Concomitant]
     Dosage: 100MG PER DAY
     Route: 048
  3. PROMACTA [Suspect]
     Indication: IDIOPATHIC THROMBOCYTOPENIC PURPURA
     Dosage: 500MG PER DAY
     Route: 048
  4. PREDNISONE TAB [Concomitant]
     Dosage: 10MG PER DAY
     Route: 048

REACTIONS (4)
  - APHASIA [None]
  - PLATELET COUNT INCREASED [None]
  - HEADACHE [None]
  - TRANSIENT ISCHAEMIC ATTACK [None]
